FAERS Safety Report 23721378 (Version 2)
Quarter: 2024Q2

REPORT INFORMATION
  Report Type: Spontaneous
  Country: US (occurrence: US)
  Receive Date: 20240409
  Receipt Date: 20240510
  Transmission Date: 20240716
  Serious: No
  Sender: FDA-Public Use
  Company Number: US-TEVA-VS-3173686

PATIENT
  Age: 43 Year
  Sex: Female

DRUGS (2)
  1. UZEDY [Suspect]
     Active Substance: RISPERIDONE
     Indication: Product used for unknown indication
     Dosage: 125/0.35 MG/ML
     Route: 065
     Dates: start: 20240130
  2. UZEDY [Suspect]
     Active Substance: RISPERIDONE
     Dosage: HER DOSE OF UZEDY WAS DECREASED TO 100 MG MONTHLY
     Route: 065
     Dates: start: 202402

REACTIONS (2)
  - Drooling [Recovered/Resolved]
  - Bradykinesia [Recovered/Resolved]

NARRATIVE: CASE EVENT DATE: 20240130
